FAERS Safety Report 6637027-5 (Version None)
Quarter: 2010Q1

REPORT INFORMATION
  Report Type: 
  Country: None (occurrence: None)
  Receive Date: 20100301
  Receipt Date: 20090312
  Transmission Date: 20100710
  Serious: Yes (Other)
  Sender: FDA-Public Use
  Company Number: RB-11678-2009

PATIENT
  Sex: Male

DRUGS (1)
  1. SUBOXONE [Suspect]
     Indication: DRUG DEPENDENCE
     Dosage: MATERNAL DOSING INFORMATION UNKNOWN. TRANSPLACENTAL
     Route: 064
     Dates: start: 20070101, end: 20070101

REACTIONS (1)
  - DRUG WITHDRAWAL SYNDROME NEONATAL [None]
